FAERS Safety Report 14848368 (Version 1)
Quarter: 2018Q2

REPORT INFORMATION
  Report Type: Report from Study
  Country: ES (occurrence: ES)
  Receive Date: 20180504
  Receipt Date: 20180504
  Transmission Date: 20180711
  Serious: Yes (Death, Hospitalization)
  Sender: FDA-Public Use
  Company Number: ES-ASTELLAS-2018US020831

PATIENT
  Age: 48 Year
  Sex: Male

DRUGS (1)
  1. TACROLIMUS. [Suspect]
     Active Substance: TACROLIMUS
     Indication: LIVER TRANSPLANT
     Route: 048

REACTIONS (4)
  - Transplant dysfunction [Fatal]
  - Transplant rejection [Recovering/Resolving]
  - Cholestasis [Recovering/Resolving]
  - Hepatic artery thrombosis [Fatal]

NARRATIVE: CASE EVENT DATE: 20180323
